FAERS Safety Report 25295569 (Version 5)
Quarter: 2025Q4

REPORT INFORMATION
  Report Type: Spontaneous
  Country: US (occurrence: US)
  Receive Date: 20250511
  Receipt Date: 20251217
  Transmission Date: 20260118
  Serious: No
  Sender: SANOFI AVENTIS
  Company Number: US-SA-2025SA130750

PATIENT
  Sex: Female
  Weight: 49.55 kg

DRUGS (1)
  1. DUPIXENT [Suspect]
     Active Substance: DUPILUMAB
     Indication: Neurodermatitis
     Dosage: 300 MG, QOW
     Route: 058

REACTIONS (8)
  - Skin ulcer [Unknown]
  - Arthritis [Unknown]
  - Back pain [Unknown]
  - Pruritus [Unknown]
  - Rash [Unknown]
  - Product administered at inappropriate site [Unknown]
  - Limb operation [Unknown]
  - Drug ineffective [Unknown]
